FAERS Safety Report 8333506-3 (Version None)
Quarter: 2012Q2

REPORT INFORMATION
  Report Type: 
  Country: None (occurrence: None)
  Receive Date: 20120503
  Receipt Date: 20101108
  Transmission Date: 20120825
  Serious: No
  Sender: FDA-Public Use
  Company Number: US-TEVA-2010005822

PATIENT
  Sex: Male
  Weight: 80.812 kg

DRUGS (1)
  1. NUVIGIL [Suspect]
     Indication: SLEEP APNOEA SYNDROME
     Dosage: 150 MILLIGRAM;
     Route: 048
     Dates: start: 20101001, end: 20101107

REACTIONS (3)
  - RASH PRURITIC [None]
  - PNEUMONIA [None]
  - RASH ERYTHEMATOUS [None]
